FAERS Safety Report 8517518-2 (Version None)
Quarter: 2012Q3

REPORT INFORMATION
  Report Type: 
  Country: None (occurrence: None)
  Receive Date: 20120718
  Receipt Date: 20120713
  Transmission Date: 20120928
  Serious: Yes (Life-Threatening, Hospitalization, Other)
  Sender: FDA-Public Use
  Company Number: US-ASTRAZENECA-2010SE17474

PATIENT
  Age: 60 Year
  Sex: Male

DRUGS (10)
  1. SOTALOL HCL [Concomitant]
  2. SIMVASTATIN [Concomitant]
  3. NEXIUM [Interacting]
     Indication: BARRETT'S OESOPHAGUS
     Route: 048
  4. PRILOSEC [Suspect]
     Route: 048
  5. PLAVIX [Interacting]
  6. ZANTAC [Concomitant]
  7. TEMAZEPAM [Concomitant]
  8. PROTONIX [Concomitant]
  9. LISINOPRIL [Suspect]
     Route: 048
  10. ASPIRIN [Concomitant]

REACTIONS (10)
  - CHOKING [None]
  - BARRETT'S OESOPHAGUS [None]
  - OESOPHAGEAL DISORDER [None]
  - DRUG INTERACTION [None]
  - MYOCARDIAL INFARCTION [None]
  - HIATUS HERNIA [None]
  - DYSPEPSIA [None]
  - PHARYNGEAL DISORDER [None]
  - NOCTURNAL DYSPNOEA [None]
  - DRUG DOSE OMISSION [None]
